FAERS Safety Report 8923853 (Version 2)
Quarter: 2013Q1

REPORT INFORMATION
  Report Type: Spontaneous
  Country: US (occurrence: US)
  Receive Date: 20121126
  Receipt Date: 20130313
  Transmission Date: 20140127
  Serious: Yes (Death, Hospitalization)
  Sender: FDA-Public Use
  Company Number: US-B.I. PHARMACEUTICALS,INC./RIDGEFIELD-2012-BI-00903BP

PATIENT
  Age: 96 Year
  Sex: Female
  Weight: 62.6 kg

DRUGS (11)
  1. PRADAXA [Suspect]
     Indication: ATRIAL FIBRILLATION
     Dosage: 300 MG
     Dates: start: 20110728, end: 20110801
  2. MEGACE [Concomitant]
     Indication: DECREASED APPETITE
     Dosage: 800 MG
     Route: 048
  3. LASIX [Concomitant]
     Indication: CARDIAC FAILURE CONGESTIVE
     Dosage: 20 MG
     Route: 048
  4. LASIX [Concomitant]
     Indication: HYPERTENSION
  5. ASPIRIN [Concomitant]
     Indication: ATRIAL FIBRILLATION
     Dosage: 81 MG
     Route: 048
  6. COREG [Concomitant]
     Indication: HYPERTENSION
     Dosage: 50 MG
     Route: 048
  7. SYNTHROID [Concomitant]
     Indication: HYPOTHYROIDISM
     Dosage: 88 MCG
     Route: 048
  8. ARICEPT [Concomitant]
     Indication: SENILE DEMENTIA
     Dosage: 10 MG
     Route: 048
  9. MULTIVITAMIN [Concomitant]
     Route: 048
  10. PROBIOTIC [Concomitant]
     Indication: URINARY TRACT INFECTION
     Route: 048
  11. CIPRO [Concomitant]
     Indication: URINARY TRACT INFECTION
     Dosage: 500 MG
     Route: 048

REACTIONS (4)
  - Lower gastrointestinal haemorrhage [Fatal]
  - Haemorrhagic anaemia [Unknown]
  - Hypercoagulation [Unknown]
  - Haematuria [Unknown]
